FAERS Safety Report 4932376-0 (Version None)
Quarter: 2006Q1

REPORT INFORMATION
  Report Type: 
  Country: None (occurrence: None)
  Receive Date: 20060228
  Receipt Date: 20060213
  Transmission Date: 20060701
  Serious: Yes (Other)
  Sender: FDA-Public Use
  Company Number: 2006EU000437

PATIENT
  Age: 52 Year
  Sex: Female

DRUGS (2)
  1. PROGRAF [Suspect]
     Indication: RENAL TRANSPLANT
  2. MYCOPHENOLATE MOFETIL (MYCOPHENOLATE MOFETIL) [Suspect]
     Indication: RENAL TRANSPLANT

REACTIONS (5)
  - BLOOD CREATININE INCREASED [None]
  - COMPLICATIONS OF TRANSPLANTED KIDNEY [None]
  - DIALYSIS [None]
  - POLYOMAVIRUS-ASSOCIATED NEPHROPATHY [None]
  - TRANSPLANT FAILURE [None]
